FAERS Safety Report 23686777 (Version 1)
Quarter: 2024Q1

REPORT INFORMATION
  Report Type: Spontaneous
  Country: US (occurrence: None)
  Receive Date: 20240328
  Receipt Date: 20240328
  Transmission Date: 20240409
  Serious: Yes (Other)
  Sender: FDA-Public Use
  Company Number: None

PATIENT
  Age: 65 Year
  Sex: Female
  Weight: 105.3 kg

DRUGS (9)
  1. VTAMA [Suspect]
     Active Substance: TAPINAROF
     Indication: Psoriasis
     Dates: start: 20231222, end: 20240112
  2. GLIPIZIDE [Concomitant]
     Active Substance: GLIPIZIDE
  3. LISINOPRIL [Concomitant]
     Active Substance: LISINOPRIL
  4. HZT [Concomitant]
  5. ATORVASTATIN [Concomitant]
     Active Substance: ATORVASTATIN
  6. FLUOXETINE HYDROCHLORIDE [Concomitant]
     Active Substance: FLUOXETINE HYDROCHLORIDE
  7. Calcipotrene Ointment [Concomitant]
  8. Scalp Solution [Concomitant]
  9. CALCIUM\VITAMIN D [Concomitant]
     Active Substance: CALCIUM\VITAMIN D

REACTIONS (2)
  - Headache [None]
  - Nasopharyngitis [None]

NARRATIVE: CASE EVENT DATE: 20231222
